FAERS Safety Report 16523070 (Version 1)
Quarter: 2019Q3

REPORT INFORMATION
  Report Type: Spontaneous
  Country: US (occurrence: US)
  Receive Date: 20190523
  Receipt Date: 20190523
  Transmission Date: 20191004
  Serious: No
  Sender: FDA-Public Use
  Company Number: None

PATIENT
  Age: 39 Year
  Sex: Male

DRUGS (1)
  1. COPAXONE [Suspect]
     Active Substance: GLATIRAMER ACETATE
     Dosage: ?          OTHER  ?
     Route: 058
     Dates: start: 2016

REACTIONS (3)
  - Injection site mass [None]
  - Injection site pain [None]
  - Injection site warmth [None]

NARRATIVE: CASE EVENT DATE: 20190523
